FAERS Safety Report 11805578 (Version 2)
Quarter: 2015Q4

REPORT INFORMATION
  Report Type: Spontaneous
  Country: AM (occurrence: AM)
  Receive Date: 20151207
  Receipt Date: 20151209
  Transmission Date: 20160305
  Serious: Yes (Other)
  Sender: FDA-Public Use
  Company Number: AM-ROCHE-1673235

PATIENT
  Sex: Female

DRUGS (1)
  1. AVASTIN [Suspect]
     Active Substance: BEVACIZUMAB
     Indication: BREAST CANCER
     Route: 042
     Dates: start: 20150825, end: 20151201

REACTIONS (3)
  - Deafness [Unknown]
  - Depression [Unknown]
  - Hypertension [Unknown]

NARRATIVE: CASE EVENT DATE: 20151127
